FAERS Safety Report 6447870-3 (Version None)
Quarter: 2009Q4

REPORT INFORMATION
  Report Type: 
  Country: None (occurrence: None)
  Receive Date: 20091120
  Receipt Date: 20091110
  Transmission Date: 20100525
  Serious: Yes (Hospitalization, Other)
  Sender: FDA-Public Use
  Company Number: JP-JNJFOC-20090902211

PATIENT
  Sex: Female
  Weight: 54 kg

DRUGS (2)
  1. DOXORUBICIN HCL [Suspect]
     Dosage: 1 COURSE
     Route: 042
  2. DOXORUBICIN HCL [Suspect]
     Indication: OVARIAN CANCER RECURRENT
     Route: 042

REACTIONS (2)
  - DIARRHOEA [None]
  - ENTEROCOLITIS [None]
